FAERS Safety Report 7995383-X (Version None)
Quarter: 2011Q4

REPORT INFORMATION
  Report Type: 
  Country: None (occurrence: None)
  Receive Date: 20111220
  Receipt Date: 20111212
  Transmission Date: 20120403
  Serious: Yes (Hospitalization)
  Sender: FDA-Public Use
  Company Number: JP-ROCHE-803890

PATIENT
  Sex: Female
  Weight: 36 kg

DRUGS (5)
  1. MARZULENE S [Concomitant]
     Route: 048
     Dates: end: 20111020
  2. ACTEMRA [Suspect]
     Route: 041
  3. ACTEMRA [Suspect]
     Indication: RHEUMATOID ARTHRITIS
     Route: 041
     Dates: start: 20090217, end: 20090609
  4. LOXONIN [Concomitant]
     Indication: PAIN
     Route: 048
     Dates: end: 20111020
  5. ACTEMRA [Suspect]
     Route: 041

REACTIONS (3)
  - VASCULITIS [None]
  - PURPURA [None]
  - RETINAL HAEMORRHAGE [None]
